FAERS Safety Report 5472642-6 (Version None)
Quarter: 2007Q4

REPORT INFORMATION
  Report Type: 
  Country: None (occurrence: None)
  Receive Date: 20071001
  Receipt Date: 20060828
  Transmission Date: 20080405
  Serious: No
  Sender: FDA-Public Use
  Company Number: US-ASTRAZENECA-2006UW16957

PATIENT
  Age: 61 Year
  Sex: Female
  Weight: 59.9 kg

DRUGS (6)
  1. ARIMIDEX [Suspect]
     Indication: BREAST CANCER FEMALE
     Route: 048
     Dates: start: 20060729
  2. ACTONEL [Concomitant]
  3. SINGULAIR [Concomitant]
  4. ASCORBIC ACID [Concomitant]
  5. VITAMIN B [Concomitant]
  6. CALCIUM [Concomitant]

REACTIONS (6)
  - ANOREXIA [None]
  - GASTROINTESTINAL SOUNDS ABNORMAL [None]
  - INFREQUENT BOWEL MOVEMENTS [None]
  - MUSCLE SPASMS [None]
  - NAUSEA [None]
  - PAIN [None]
